FAERS Safety Report 10777140 (Version 2)
Quarter: 2017Q2

REPORT INFORMATION
  Report Type: Spontaneous
  Country: US (occurrence: US)
  Receive Date: 20150209
  Receipt Date: 20170417
  Transmission Date: 20170829
  Serious: Yes (Hospitalization)
  Sender: FDA-Public Use
  Company Number: PHHY2015US014938

PATIENT
  Age: 68 Year
  Sex: Female

DRUGS (2)
  1. TIGECYCLINE. [Concomitant]
     Active Substance: TIGECYCLINE
     Indication: MYCOBACTERIUM ABSCESSUS INFECTION
     Dosage: 50 MG, BID
     Route: 042
  2. CLOFAZIMINE [Suspect]
     Active Substance: CLOFAZIMINE
     Indication: MYCOBACTERIUM ABSCESSUS INFECTION
     Dosage: 200 MG, QD
     Route: 048

REACTIONS (17)
  - Gastrointestinal tract mucosal pigmentation [Recovered/Resolved]
  - Malabsorption [Recovered/Resolved]
  - Folate deficiency [Recovered/Resolved]
  - Anaemia [Recovered/Resolved]
  - Macrocytosis [Recovered/Resolved]
  - Vitamin D deficiency [Recovered/Resolved]
  - Oedema [Recovered/Resolved]
  - Malnutrition [Recovered/Resolved]
  - Failure to thrive [Recovered/Resolved]
  - Product use in unapproved indication [Unknown]
  - Haematochezia [Recovered/Resolved]
  - Abdominal pain lower [Recovered/Resolved]
  - Abdominal tenderness [Recovered/Resolved]
  - Hypovitaminosis [Recovered/Resolved]
  - Histiocytosis [Recovered/Resolved]
  - Weight decreased [Recovered/Resolved]
  - Diarrhoea [Recovered/Resolved]
